FAERS Safety Report 10369612 (Version 3)
Quarter: 2015Q4

REPORT INFORMATION
  Report Type: Spontaneous
  Country: US (occurrence: US)
  Receive Date: 20140807
  Receipt Date: 20151013
  Transmission Date: 20160304
  Serious: No
  Sender: FDA-Public Use
  Company Number: US-AMGEN-USASP2013057346

PATIENT
  Age: 49 Year
  Sex: Female

DRUGS (14)
  1. FILGRASTIM [Suspect]
     Active Substance: FILGRASTIM
     Indication: PRODUCT USED FOR UNKNOWN INDICATION
     Dosage: 480 UNK, UNK
     Route: 065
     Dates: start: 20130726
  2. HERCEPTIN [Suspect]
     Active Substance: TRASTUZUMAB
     Dosage: 446 MG, UNK
     Route: 042
     Dates: start: 20140320
  3. HERCEPTIN [Suspect]
     Active Substance: TRASTUZUMAB
     Dosage: 206 MG, UNK
     Route: 042
     Dates: start: 20140227
  4. HERCEPTIN [Suspect]
     Active Substance: TRASTUZUMAB
     Dosage: UNK, CYCLE 12, DAY 1
     Route: 042
     Dates: start: 20131127
  5. ONDANSETRON HCL [Concomitant]
     Active Substance: ONDANSETRON HYDROCHLORIDE
     Dosage: 16 UNK, UNK
     Route: 065
  6. HERCEPTIN [Suspect]
     Active Substance: TRASTUZUMAB
     Dosage: 446 MG, UNK (CYCLE 9 DAY 1)
     Route: 042
     Dates: start: 20130926
  7. HERCEPTIN [Suspect]
     Active Substance: TRASTUZUMAB
     Dosage: 446 MG, UNK
     Route: 042
     Dates: start: 20131017
  8. LORAZEPAM. [Concomitant]
     Active Substance: LORAZEPAM
     Dosage: 1 UNK, UNK
     Route: 065
  9. SODIUM CHLORIDE. [Concomitant]
     Active Substance: SODIUM CHLORIDE
     Indication: PRODUCT USED FOR UNKNOWN INDICATION
     Dosage: 10 UNK, UNK
     Route: 042
  10. HERCEPTIN [Suspect]
     Active Substance: TRASTUZUMAB
     Indication: PRODUCT USED FOR UNKNOWN INDICATION
     Dosage: 134 MG, UNK
     Route: 042
     Dates: start: 20130809
  11. HERCEPTIN [Suspect]
     Active Substance: TRASTUZUMAB
     Dosage: 446 MG, UNK
     Route: 042
     Dates: start: 20131107
  12. HERCEPTIN [Suspect]
     Active Substance: TRASTUZUMAB
     Dosage: UNK, CYCLE 13, DAY 1
     Route: 042
     Dates: start: 20131218
  13. DOCETAXEL. [Suspect]
     Active Substance: DOCETAXEL
     Indication: PRODUCT USED FOR UNKNOWN INDICATION
     Dosage: 115 UNK, UNK
     Route: 065
  14. CARBOPLATIN. [Suspect]
     Active Substance: CARBOPLATIN
     Indication: PRODUCT USED FOR UNKNOWN INDICATION
     Dosage: 763 UNK, UNK
     Route: 065

REACTIONS (14)
  - Creatinine renal clearance increased [Unknown]
  - Haemoglobin decreased [Unknown]
  - White blood cell count decreased [Recovered/Resolved]
  - Mean cell haemoglobin concentration abnormal [Unknown]
  - Red cell distribution width abnormal [Unknown]
  - Mean platelet volume abnormal [Unknown]
  - Weight increased [Unknown]
  - Red blood cell count decreased [Unknown]
  - Weight fluctuation [Unknown]
  - Haematocrit abnormal [Unknown]
  - Blood urea nitrogen/creatinine ratio increased [Unknown]
  - Weight decreased [Unknown]
  - Laboratory test abnormal [Unknown]
  - Creatinine renal clearance abnormal [Unknown]

NARRATIVE: CASE EVENT DATE: 20130815
